FAERS Safety Report 7320338-8 (Version None)
Quarter: 2011Q1

REPORT INFORMATION
  Report Type: 
  Country: None (occurrence: None)
  Receive Date: 20110215
  Receipt Date: 20110201
  Transmission Date: 20110831
  Serious: Yes (Other)
  Sender: FDA-Public Use
  Company Number: 2011-00172

PATIENT
  Age: 3 Month
  Sex: Male
  Weight: 8 kg

DRUGS (2)
  1. CEFOTAXIME [Suspect]
     Indication: PYREXIA
     Dosage: 2.5 MG (2.5 GRAM INJECTION), INTRAMUSCULAR
     Route: 030
  2. DEXAMETHASONE [Concomitant]

REACTIONS (1)
  - LOSS OF CONSCIOUSNESS [None]
